FAERS Safety Report 5604972-9 (Version None)
Quarter: 2008Q1

REPORT INFORMATION
  Report Type: 
  Country: None (occurrence: None)
  Receive Date: 20080128
  Receipt Date: 20080107
  Transmission Date: 20080703
  Serious: No
  Sender: FDA-Public Use
  Company Number: US-BOEHRINGER INGELHEIM PHARMACEUTICALS, INC.-2008-BP-00288BP

PATIENT
  Sex: Female

DRUGS (2)
  1. MOBIC [Suspect]
     Indication: ARTHRITIS
     Route: 048
     Dates: start: 20050101
  2. TYLENOL [Concomitant]
     Indication: ARTHRITIS

REACTIONS (2)
  - ASTHENIA [None]
  - DIZZINESS [None]
